FAERS Safety Report 9715899 (Version 4)
Quarter: 2014Q1

REPORT INFORMATION
  Report Type: Spontaneous
  Country: IT (occurrence: IT)
  Receive Date: 20131127
  Receipt Date: 20140210
  Transmission Date: 20141002
  Serious: Yes (Other)
  Sender: FDA-Public Use
  Company Number: IT-JNJFOC-20131113635

PATIENT
  Age: 19 Year
  Sex: Female

DRUGS (1)
  1. HALDOL [Suspect]
     Indication: PRODUCT USED FOR UNKNOWN INDICATION
     Route: 048
     Dates: start: 20131120, end: 20131120

REACTIONS (4)
  - Self injurious behaviour [Unknown]
  - Dyskinesia [Unknown]
  - Dystonia [Unknown]
  - Drug abuse [Unknown]
